FAERS Safety Report 17999189 (Version 1)
Quarter: 2020Q3

REPORT INFORMATION
  Report Type: Spontaneous
  Country: US (occurrence: US)
  Receive Date: 20200708
  Receipt Date: 20200708
  Transmission Date: 20201103
  Serious: Yes (Death, Life-Threatening, Other)
  Sender: FDA-Public Use
  Company Number: None

PATIENT
  Age: 88 Year
  Sex: Male
  Weight: 85.5 kg

DRUGS (2)
  1. MULTI VITAMIN [Concomitant]
     Active Substance: VITAMINS
  2. NORCO [Suspect]
     Active Substance: ACETAMINOPHEN\HYDROCODONE BITARTRATE
     Indication: ARTHRALGIA
     Route: 048
     Dates: start: 20170819, end: 20170820

REACTIONS (12)
  - Dyspnoea [None]
  - Hyperhidrosis [None]
  - Pulmonary oedema [None]
  - Tremor [None]
  - Toxicity to various agents [None]
  - Atrial fibrillation [None]
  - Infarction [None]
  - Acute kidney injury [None]
  - Product label confusion [None]
  - Hypopnoea [None]
  - Contraindicated product administered [None]
  - Chest pain [None]

NARRATIVE: CASE EVENT DATE: 20170819
